FAERS Safety Report 4557929-3 (Version None)
Quarter: 2005Q1

REPORT INFORMATION
  Report Type: 
  Country: None (occurrence: None)
  Receive Date: 20050121
  Receipt Date: 20040202
  Transmission Date: 20050727
  Serious: No
  Sender: FDA-Public Use
  Company Number: US-BRISTOL-MYERS SQUIBB COMPANY-12498788

PATIENT
  Age: 45 Year
  Sex: Female

DRUGS (26)
  1. SERZONE [Suspect]
     Indication: MAJOR DEPRESSION
     Dates: start: 19961007, end: 19990301
  2. DEPAKOTE [Concomitant]
  3. VISTARIL [Concomitant]
  4. PREMPRO [Concomitant]
  5. SYNTHROID [Concomitant]
  6. LEVSIN PB [Concomitant]
  7. PEPCID [Concomitant]
  8. HYDROXYZINE PAMOATE [Concomitant]
  9. IBUPROFEN [Concomitant]
  10. HYDROCODONE + ACETAMINOPHEN [Concomitant]
  11. HYCOTUSS [Concomitant]
  12. CECLOR [Concomitant]
  13. VOLMAX [Concomitant]
  14. LEVOTHYROXINE [Concomitant]
  15. BIAXIN [Concomitant]
  16. CHLORZOXAZONE [Concomitant]
  17. MICONAZOLE [Concomitant]
  18. DOXYCYCLINE HYCLATE CAPS [Concomitant]
  19. HYOSCYAMINE [Concomitant]
  20. PRILOSEC [Concomitant]
  21. RISPERDAL [Concomitant]
  22. ZITHROMAX [Concomitant]
  23. CYANOCOBALAMINE [Concomitant]
  24. CLONAZEPAM [Concomitant]
  25. ZYPREXA [Concomitant]
  26. CIPRO [Concomitant]

REACTIONS (3)
  - ABDOMINAL PAIN UPPER [None]
  - ALANINE AMINOTRANSFERASE INCREASED [None]
  - BACK PAIN [None]
